FAERS Safety Report 11269664 (Version 2)
Quarter: 2015Q3

REPORT INFORMATION
  Report Type: Spontaneous
  Country: AU (occurrence: AU)
  Receive Date: 20150714
  Receipt Date: 20150714
  Transmission Date: 20151125
  Serious: Yes (Hospitalization, Other)
  Sender: FDA-Public Use
  Company Number: AU-PFIZER INC-2015229054

PATIENT
  Age: 38 Year
  Sex: Male
  Weight: 75 kg

DRUGS (3)
  1. PHENYTOIN SODIUM. [Suspect]
     Active Substance: PHENYTOIN SODIUM
     Dosage: AT LEAST ONE HUNDRED 100 MG PHENYTOIN CAPSULES (TOTAL INGESTION 10 G; 133 MG/KG)
  2. HUMULIN NOS [Concomitant]
     Active Substance: INSULIN HUMAN
     Indication: TYPE 1 DIABETES MELLITUS
     Dosage: 20 IU, 2X/DAY
  3. PHENYTOIN SODIUM. [Suspect]
     Active Substance: PHENYTOIN SODIUM
     Indication: SEIZURE
     Dosage: 300 MG, DAILY

REACTIONS (20)
  - Toxicity to various agents [Unknown]
  - Encephalopathy [Unknown]
  - Dysarthria [Unknown]
  - Nystagmus [Unknown]
  - Gait disturbance [Unknown]
  - Anticonvulsant drug level increased [Unknown]
  - Depressed level of consciousness [Unknown]
  - Cognitive disorder [Unknown]
  - Cerebellar atrophy [Not Recovered/Not Resolved]
  - Ataxia [Unknown]
  - Poisoning deliberate [Unknown]
  - Dyskinesia [Unknown]
  - Critical illness myopathy [Unknown]
  - Agitation [Unknown]
  - Somnolence [Unknown]
  - Neurotoxicity [Unknown]
  - Dizziness [Unknown]
  - Vomiting [Unknown]
  - Intentional overdose [Unknown]
  - Nausea [Unknown]
